FAERS Safety Report 5941744-X (Version None)
Quarter: 2008Q4

REPORT INFORMATION
  Report Type: 
  Country: None (occurrence: None)
  Receive Date: 20081105
  Receipt Date: 20081023
  Transmission Date: 20090506
  Serious: Yes (Death, Hospitalization)
  Sender: FDA-Public Use
  Company Number: TW-SANOFI-SYNTHELABO-A01200813251

PATIENT

DRUGS (3)
  1. LANSOPRAZOLE [Suspect]
     Indication: UPPER GASTROINTESTINAL HAEMORRHAGE
     Dosage: UNK
     Route: 048
  2. CELECOXIB [Suspect]
     Indication: GOUTY ARTHRITIS
     Dosage: UNK
     Route: 048
  3. PLAVIX [Suspect]
     Indication: ISCHAEMIC STROKE
     Dosage: UNK
     Route: 048
     Dates: start: 20070306

REACTIONS (2)
  - CONDITION AGGRAVATED [None]
  - STEVENS-JOHNSON SYNDROME [None]
